FAERS Safety Report 9633022 (Version 2)
Quarter: 2014Q1

REPORT INFORMATION
  Report Type: Report from Study
  Country: GB (occurrence: GB)
  Receive Date: 20131018
  Receipt Date: 20140116
  Transmission Date: 20141002
  Serious: Yes (Hospitalization, Other)
  Sender: FDA-Public Use
  Company Number: GB-ABBVIE-13P-167-1157797-00

PATIENT
  Age: 59 Year
  Sex: Female
  Weight: 68.4 kg

DRUGS (11)
  1. HUMIRA [Suspect]
     Indication: RHEUMATOID ARTHRITIS
     Route: 058
     Dates: start: 201304, end: 201309
  2. METHOTREXATE [Concomitant]
     Indication: RHEUMATOID ARTHRITIS
     Route: 048
     Dates: start: 20090529
  3. SULFASALAZINE [Concomitant]
     Indication: RHEUMATOID ARTHRITIS
     Route: 048
     Dates: start: 201001
  4. SULFASALAZINE [Concomitant]
     Route: 048
  5. CODEINE [Concomitant]
     Indication: RHEUMATOID ARTHRITIS
     Route: 048
  6. PARACETAMOL [Concomitant]
     Indication: RHEUMATOID ARTHRITIS
     Route: 048
  7. HYDROXYCHLOROQUINE SULPHATE [Concomitant]
     Indication: RHEUMATOID ARTHRITIS
     Route: 048
     Dates: start: 2005
  8. HYDROXYCHLOROQUINE SULPHATE [Concomitant]
     Route: 048
  9. ALENDRONIC ACID [Concomitant]
     Indication: OSTEOPENIA
     Dosage: AT 7AM (ON SAME DAY EACH WEEK)
     Route: 048
  10. FOLIC ACID [Concomitant]
     Indication: PRODUCT USED FOR UNKNOWN INDICATION
     Dosage: IN THE MORNING
     Route: 048
  11. ADCAL D3 [Concomitant]
     Indication: PRODUCT USED FOR UNKNOWN INDICATION
     Route: 048

REACTIONS (8)
  - Impaired driving ability [Recovered/Resolved]
  - Physical disability [Recovered/Resolved]
  - Mental disorder [Recovered/Resolved]
  - Pneumonia [Recovered/Resolved]
  - Weight decreased [Recovered/Resolved]
  - Lung disorder [Unknown]
  - Pulmonary cavitation [Recovering/Resolving]
  - Pleural infection bacterial [Recovering/Resolving]
